FAERS Safety Report 9669848 (Version 3)
Quarter: 2013Q4

REPORT INFORMATION
  Report Type: Report from Study
  Country: ES (occurrence: ES)
  Receive Date: 20131105
  Receipt Date: 20131205
  Transmission Date: 20140711
  Serious: Yes (Other)
  Sender: FDA-Public Use
  Company Number: ES-TEVA-438445USA

PATIENT
  Age: 69 Year
  Sex: Female

DRUGS (2)
  1. BENDAMUSTINE [Suspect]
     Indication: B-CELL LYMPHOMA
     Route: 041
     Dates: start: 20130805
  2. RITUXIMAB [Concomitant]
     Dates: start: 20130805

REACTIONS (3)
  - Haemolytic anaemia [Unknown]
  - Leukopenia [Unknown]
  - Neutropenia [Unknown]
